FAERS Safety Report 20699695 (Version 5)
Quarter: 2023Q4

REPORT INFORMATION
  Report Type: Report from Study
  Country: US (occurrence: US)
  Receive Date: 20220412
  Receipt Date: 20231129
  Transmission Date: 20240110
  Serious: Yes (Other)
  Sender: FDA-Public Use
  Company Number: US-MYLANLABS-2021M1037667

PATIENT
  Sex: Female
  Weight: 77.1 kg

DRUGS (2)
  1. GLATIRAMER ACETATE [Suspect]
     Active Substance: GLATIRAMER ACETATE
     Indication: Relapsing-remitting multiple sclerosis
     Dosage: 40 MILLIGRAM, 3XW
     Route: 058
     Dates: start: 202105
  2. GLATIRAMER ACETATE [Suspect]
     Active Substance: GLATIRAMER ACETATE
     Dosage: 40 MILLIGRAM, 3XW
     Route: 058

REACTIONS (16)
  - Multiple sclerosis relapse [Unknown]
  - Burning sensation [Unknown]
  - Drug ineffective [Unknown]
  - Lack of injection site rotation [Recovered/Resolved]
  - Lipoatrophy [Unknown]
  - Feeling abnormal [Unknown]
  - Anal incontinence [Unknown]
  - Paraesthesia [Unknown]
  - Limb discomfort [Unknown]
  - Malaise [Unknown]
  - Injection site mass [Not Recovered/Not Resolved]
  - Injection site bruising [Unknown]
  - Injection site swelling [Unknown]
  - Back pain [Unknown]
  - Arthralgia [Recovered/Resolved]
  - Injection site indentation [Unknown]
